FAERS Safety Report 8187854-0 (Version None)
Quarter: 2012Q1

REPORT INFORMATION
  Report Type: 
  Country: None (occurrence: None)
  Receive Date: 20120221
  Receipt Date: 20110902
  Transmission Date: 20120608
  Serious: Yes (Hospitalization)
  Sender: FDA-Public Use
  Company Number: PHEH2011US03222

PATIENT
  Age: 17 Year
  Sex: Female
  Weight: 52.2 kg

DRUGS (3)
  1. XOLAIR [Concomitant]
  2. PULMOZYME [Concomitant]
  3. TOBI [Suspect]
     Dosage: 300 MG, TWICE DAILY FOR 28 DAYS ON AND 28 DAYS OFF, INHALATION
     Route: 055
     Dates: start: 20071017

REACTIONS (1)
  - HAEMOPTYSIS [None]
